FAERS Safety Report 12084602 (Version 1)
Quarter: 2016Q1

REPORT INFORMATION
  Report Type: Report from Study
  Country: NL (occurrence: NL)
  Receive Date: 20160217
  Receipt Date: 20160217
  Transmission Date: 20160526
  Serious: Yes (Hospitalization, Other)
  Sender: FDA-Public Use
  Company Number: NL-AMGEN-NLDSL2016018080

PATIENT
  Age: 86 Year
  Sex: Female

DRUGS (1)
  1. ARANESP [Suspect]
     Active Substance: DARBEPOETIN ALFA
     Indication: NEPHROGENIC ANAEMIA
     Dosage: 60 MUG, (0.3 ML, 200 MCG), Q3WK
     Route: 058

REACTIONS (3)
  - Intentional product misuse [Unknown]
  - Nasal congestion [Unknown]
  - Transfusion [Unknown]

NARRATIVE: CASE EVENT DATE: 20160211
